FAERS Safety Report 18577246 (Version 1)
Quarter: 2020Q4

REPORT INFORMATION
  Report Type: Spontaneous
  Country: GB (occurrence: GB)
  Receive Date: 20201204
  Receipt Date: 20201204
  Transmission Date: 20210114
  Serious: Yes (Other)
  Sender: FDA-Public Use
  Company Number: GB-009507513-2012GBR001105

PATIENT
  Age: 47 Year
  Sex: Female

DRUGS (4)
  1. VORTIOXETINE. [Concomitant]
     Active Substance: VORTIOXETINE
     Dosage: UNK
  2. MAXALT [Suspect]
     Active Substance: RIZATRIPTAN BENZOATE
     Indication: MIGRAINE
     Dosage: 1 DOSAGE FORM, AT THE ONSET OF MIGRAINE
     Route: 048
  3. ESOMEPRAZOLE. [Concomitant]
     Active Substance: ESOMEPRAZOLE MAGNESIUM
     Dosage: UNK
  4. LORATADINE. [Concomitant]
     Active Substance: LORATADINE
     Dosage: UNK

REACTIONS (1)
  - Oral pain [Recovered/Resolved]
